FAERS Safety Report 15749443 (Version 1)
Quarter: 2018Q4

REPORT INFORMATION
  Report Type: Spontaneous
  Country: US (occurrence: US)
  Receive Date: 20181205
  Receipt Date: 20181205
  Transmission Date: 20190205
  Serious: Yes (Hospitalization)
  Sender: FDA-Public Use
  Company Number: None

PATIENT
  Age: 20 Year
  Sex: Male
  Weight: 128.14 kg

DRUGS (2)
  1. PACLITAXEL 6MG/ML 50 ML VIAL HOSPIRA WORLDWIDE INC. [Suspect]
     Active Substance: PACLITAXEL
     Dates: start: 20181128
  2. PACLITAXEL 6MG/ML 50 ML VIAL HOSPIRA WORLDWIDE INC. [Suspect]
     Active Substance: PACLITAXEL
     Dates: start: 20181107

REACTIONS (3)
  - Vomiting [None]
  - Abdominal discomfort [None]
  - Infusion related reaction [None]

NARRATIVE: CASE EVENT DATE: 20181128
